FAERS Safety Report 13883074 (Version 1)
Quarter: 2017Q3

REPORT INFORMATION
  Report Type: Spontaneous
  Country: US (occurrence: US)
  Receive Date: 20170818
  Receipt Date: 20170818
  Transmission Date: 20171127
  Serious: No
  Sender: FDA-Public Use
  Company Number: US-BAYER-2017-157600

PATIENT
  Age: 52 Year
  Sex: Male

DRUGS (2)
  1. MOISTURIZER [Concomitant]
     Active Substance: UNSPECIFIED INGREDIENT
     Dosage: UNK
  2. LOTRIMIN ULTRA ANTIFUNGAL [Suspect]
     Active Substance: BUTENAFINE HYDROCHLORIDE
     Indication: THERAPEUTIC SKIN CARE TOPICAL
     Dosage: UNK
     Route: 061
     Dates: start: 201707

REACTIONS (4)
  - Wrong technique in product usage process [Unknown]
  - Product packaging issue [None]
  - Underdose [Unknown]
  - Wrong technique in product usage process [Unknown]

NARRATIVE: CASE EVENT DATE: 201707
